FAERS Safety Report 18171222 (Version 2)
Quarter: 2020Q3

REPORT INFORMATION
  Report Type: Spontaneous
  Country: RU (occurrence: US)
  Receive Date: 20200819
  Receipt Date: 20200827
  Transmission Date: 20201103
  Serious: Yes (Other)
  Sender: FDA-Public Use
  Company Number: US-TEVA-2020-US-1814985

PATIENT
  Age: 1 Decade
  Sex: Female

DRUGS (5)
  1. OLAPARIB. [Suspect]
     Active Substance: OLAPARIB
     Indication: GLIOBLASTOMA
     Dosage: TOTAL 16 CYCLES OF TEMOZOLOMIDE AND OLAPARIB
     Route: 065
     Dates: start: 201701, end: 201807
  2. TEMOZOLOMIDE. [Suspect]
     Active Substance: TEMOZOLOMIDE
     Indication: GLIOBLASTOMA
     Dosage: IN TOTAL, SHE RECEIVED 16 CYCLES OF TEMOZOLOMIDE AND OLAPARIB
     Route: 065
     Dates: end: 201807
  3. TEMOZOLOMIDE. [Suspect]
     Active Substance: TEMOZOLOMIDE
     Indication: GLIOBLASTOMA
     Route: 065
  4. TEMOZOLOMIDE. [Suspect]
     Active Substance: TEMOZOLOMIDE
     Indication: GLIOBLASTOMA
     Route: 065
  5. TEMOZOLOMIDE. [Suspect]
     Active Substance: TEMOZOLOMIDE
     Indication: GLIOBLASTOMA
     Dosage: AFTER A 4?WEEK TREATMENT?FREE INTERVAL, SHE RECEIVED SIX ADDITIONAL CYCLES OF TEMOZOLOMIDE MONOTH...
     Route: 065

REACTIONS (1)
  - Haematotoxicity [Unknown]
